FAERS Safety Report 4346318-2 (Version None)
Quarter: 2004Q1

REPORT INFORMATION
  Report Type: 
  Country: None (occurrence: None)
  Receive Date: 20040325
  Receipt Date: 20040121
  Transmission Date: 20041129
  Serious: No
  Sender: FDA-Public Use
  Company Number: USA040157239

PATIENT
  Age: 61 Year
  Sex: Female

DRUGS (9)
  1. FORTEO [Suspect]
     Indication: OSTEOPOROSIS
     Dates: start: 20021201
  2. STRATTERA [Suspect]
  3. SYNTHROID [Concomitant]
  4. MAXZIDE [Concomitant]
  5. BEXTRA [Concomitant]
  6. CALCIUM [Concomitant]
  7. MAGNESIUM [Concomitant]
  8. CELEXA [Concomitant]
  9. ZYRTEC [Concomitant]

REACTIONS (4)
  - HEART RATE INCREASED [None]
  - MIDDLE INSOMNIA [None]
  - NIGHT SWEATS [None]
  - NIGHTMARE [None]
